FAERS Safety Report 15772681 (Version 3)
Quarter: 2019Q2

REPORT INFORMATION
  Report Type: Spontaneous
  Country: US (occurrence: US)
  Receive Date: 20181228
  Receipt Date: 20190425
  Transmission Date: 20190711
  Serious: Yes (Hospitalization, Other)
  Sender: FDA-Public Use
  Company Number: US-PFIZER INC-2016346680

PATIENT
  Age: 62 Year
  Sex: Female
  Weight: 104.3 kg

DRUGS (4)
  1. IBRANCE [Suspect]
     Active Substance: PALBOCICLIB
     Dosage: UNK
  2. LETROZOLE. [Concomitant]
     Active Substance: LETROZOLE
     Indication: BREAST CANCER METASTATIC
     Dosage: UNK
  3. IBRANCE [Suspect]
     Active Substance: PALBOCICLIB
     Indication: BREAST CANCER METASTATIC
     Dosage: 125 MG, UNK
     Dates: start: 2017
  4. IBRANCE [Suspect]
     Active Substance: PALBOCICLIB
     Dosage: 125 MG, CYCLIC (1 CAPSULE ONCE A DAY BEFORE BEDTIME BY MOUTH, 21 DAYS ON AND 7 DAYS OFF)
     Route: 048
     Dates: start: 201811

REACTIONS (16)
  - Back pain [Not Recovered/Not Resolved]
  - Arthritis [Not Recovered/Not Resolved]
  - Memory impairment [Not Recovered/Not Resolved]
  - Product dose omission [Not Recovered/Not Resolved]
  - Intestinal ischaemia [Unknown]
  - Feeling abnormal [Unknown]
  - Condition aggravated [Unknown]
  - Neoplasm progression [Not Recovered/Not Resolved]
  - Vertigo [Recovered/Resolved]
  - Rash [Not Recovered/Not Resolved]
  - Malaise [Unknown]
  - Cognitive disorder [Not Recovered/Not Resolved]
  - Hypertension [Recovering/Resolving]
  - Cardiovascular disorder [Unknown]
  - Stress [Not Recovered/Not Resolved]
  - Blood count abnormal [Unknown]

NARRATIVE: CASE EVENT DATE: 2017
